FAERS Safety Report 5506769-7 (Version None)
Quarter: 2007Q4

REPORT INFORMATION
  Report Type: 
  Country: None (occurrence: None)
  Receive Date: 20071101
  Receipt Date: 20071019
  Transmission Date: 20080405
  Serious: Yes (Hospitalization)
  Sender: FDA-Public Use
  Company Number: 2007SP003572

PATIENT
  Age: 61 Year
  Sex: Female

DRUGS (10)
  1. XOPENEX [Suspect]
     Indication: ASTHMA
     Dosage: 1.25 MG/3ML;Q4H; INHALATION
     Route: 055
  2. DIGOXIN [Concomitant]
  3. QUINALAPRIL [Concomitant]
  4. ADVAIR DISKUS 100/50 [Concomitant]
  5. ASCORBIC ACID [Concomitant]
  6. VITAMIN D [Concomitant]
  7. POTASSIUM CHLORIDE [Concomitant]
  8. LASIX [Concomitant]
  9. PNEUMOVAX 23 [Concomitant]
  10. OXYGEN [Concomitant]

REACTIONS (6)
  - ASTHMA [None]
  - CHRONIC OBSTRUCTIVE PULMONARY DISEASE [None]
  - CONDITION AGGRAVATED [None]
  - DIAPHRAGMATIC DISORDER [None]
  - RESPIRATORY ARREST [None]
  - SLEEP APNOEA SYNDROME [None]
